FAERS Safety Report 5564113-3 (Version None)
Quarter: 2007Q4

REPORT INFORMATION
  Report Type: 
  Country: None (occurrence: None)
  Receive Date: 20071217
  Receipt Date: 20071210
  Transmission Date: 20080405
  Serious: Yes (Other)
  Sender: FDA-Public Use
  Company Number: US-RANBAXY-2007US-08698

PATIENT

DRUGS (2)
  1. ISOTRETINOIN [Suspect]
     Indication: DRUG USE FOR UNKNOWN INDICATION
     Dosage: 2 AM, 2 PM
     Route: 048
     Dates: start: 20070706, end: 20070710
  2. NUVARING [Suspect]
     Indication: DRUG USE FOR UNKNOWN INDICATION
     Dosage: UNK
     Route: 067
     Dates: end: 20070611

REACTIONS (3)
  - ABORTION INDUCED [None]
  - FUNGAL INFECTION [None]
  - PREGNANCY [None]
